FAERS Safety Report 9528130 (Version 1)
Quarter: 2013Q3

REPORT INFORMATION
  Report Type: Spontaneous
  Country: DE (occurrence: None)
  Receive Date: 20130913
  Receipt Date: 20130913
  Transmission Date: 20140515
  Serious: Yes (Other)
  Sender: FDA-Public Use
  Company Number: SYM-2013-10206

PATIENT
  Age: 43 Year
  Sex: Male

DRUGS (1)
  1. DIAZEPAM [Suspect]
     Indication: SUICIDE ATTEMPT

REACTIONS (10)
  - Somnolence [None]
  - Sopor [None]
  - Hypotonia [None]
  - Hypotension [None]
  - Cyanosis [None]
  - Oxygen saturation decreased [None]
  - Parkinsonism [None]
  - Decreased interest [None]
  - Suicide attempt [None]
  - Incorrect dose administered [None]
